FAERS Safety Report 9106614 (Version 2)
Quarter: 2013Q2

REPORT INFORMATION
  Report Type: Spontaneous
  Country: AU (occurrence: AU)
  Receive Date: 20130222
  Receipt Date: 20130420
  Transmission Date: 20140414
  Serious: Yes (Hospitalization)
  Sender: FDA-Public Use
  Company Number: AU-B.I. PHARMACEUTICALS,INC./RIDGEFIELD-2013-AU-00157AU

PATIENT
  Age: 79 Year
  Sex: Female
  Weight: 61 kg

DRUGS (6)
  1. PRADAXA [Suspect]
     Indication: CEREBROVASCULAR ACCIDENT PROPHYLAXIS
     Dosage: 110 MG
     Dates: start: 20110913, end: 20130131
  2. PRADAXA [Suspect]
     Indication: ATRIAL FIBRILLATION
  3. LOSEC [Concomitant]
     Dosage: 40 MG
     Dates: start: 20080313
  4. LIPITOR [Concomitant]
     Dosage: 40 MG
     Dates: start: 20041216
  5. OROXINE [Concomitant]
     Dosage: 100 MCG
     Dates: start: 20031013
  6. ACTONEL [Concomitant]
     Dosage: 5 MG
     Dates: start: 20090714

REACTIONS (2)
  - Mitral valve incompetence [Recovered/Resolved]
  - Off label use [Unknown]
